FAERS Safety Report 16456745 (Version 1)
Quarter: 2019Q2

REPORT INFORMATION
  Report Type: Spontaneous
  Country: US (occurrence: US)
  Receive Date: 20190510
  Receipt Date: 20190510
  Transmission Date: 20190711
  Serious: Yes (Hospitalization)
  Sender: FDA-Public Use
  Company Number: None

PATIENT
  Age: 59 Year
  Sex: Male

DRUGS (1)
  1. LETAIRIS [Suspect]
     Active Substance: AMBRISENTAN
     Indication: CONGENITAL CARDIOVASCULAR ANOMALY
     Route: 048

REACTIONS (3)
  - Proctitis [None]
  - Colitis [None]
  - Seizure [None]

NARRATIVE: CASE EVENT DATE: 20190417
